FAERS Safety Report 22385202 (Version 1)
Quarter: 2023Q2

REPORT INFORMATION
  Report Type: Report from Study
  Country: GB (occurrence: None)
  Receive Date: 20230530
  Receipt Date: 20230530
  Transmission Date: 20230721
  Serious: Yes (Other)
  Sender: FDA-Public Use
  Company Number: GB-Merck Healthcare KGaA-9405289

PATIENT
  Sex: Female

DRUGS (2)
  1. MAVENCLAD [Suspect]
     Active Substance: CLADRIBINE
     Indication: Multiple sclerosis
     Dosage: YEAR ONE WEEK ONE THERAPY
     Route: 048
     Dates: start: 20230424
  2. MAVENCLAD [Suspect]
     Active Substance: CLADRIBINE
     Dosage: YEAR ONE WEEK TWO THERAPY AT A PRESCRIBED DOSE OF 2 TABLETS ON DAYS 1 TO 2 AND 1 TAB ON DAYS 3 TO 5
     Route: 048
     Dates: start: 20230523

REACTIONS (3)
  - Colonoscopy [Unknown]
  - Electrocauterisation [Unknown]
  - Post procedural haemorrhage [Unknown]
